FAERS Safety Report 8891301 (Version 4)
Quarter: 2014Q2

REPORT INFORMATION
  Report Type: Spontaneous
  Country: GB (occurrence: GB)
  Receive Date: 20121107
  Receipt Date: 20140530
  Transmission Date: 20141212
  Serious: Yes (Death, Other)
  Sender: FDA-Public Use
  Company Number: GB-AMGEN-GBRSP2012070480

PATIENT
  Age: 3 Year
  Sex: Female

DRUGS (2)
  1. PROLIA [Suspect]
     Indication: HYPERCALCAEMIA
     Dosage: 0.13 MG/KG, UNK
     Route: 065
  2. PROLIA [Suspect]
     Dosage: 0.5 MG/KG, UNK
     Route: 065

REACTIONS (3)
  - Death [Fatal]
  - Pulmonary hypertension [Unknown]
  - Hypercalcaemia [Recovered/Resolved]
